FAERS Safety Report 4289263-3 (Version None)
Quarter: 2004Q1

REPORT INFORMATION
  Report Type: 
  Country: None (occurrence: None)
  Receive Date: 20040203
  Receipt Date: 20000501
  Transmission Date: 20041129
  Serious: Yes (Other)
  Sender: FDA-Public Use
  Company Number: 2000-054

PATIENT
  Age: 54 Year
  Sex: Female
  Weight: 58.9676 kg

DRUGS (4)
  1. DORYX [Suspect]
     Indication: URINARY TRACT INFECTION
     Dosage: 100 MG BID ORAL
     Route: 048
     Dates: start: 20000201, end: 20000205
  2. PRINIVIL [Concomitant]
  3. TYLENOL (CAPLET) [Concomitant]
  4. BIOFINE (OTC CREAM) [Concomitant]

REACTIONS (3)
  - CONDITION AGGRAVATED [None]
  - PAIN IN EXTREMITY [None]
  - STOMATITIS [None]
